FAERS Safety Report 6922663-9 (Version None)
Quarter: 2010Q3

REPORT INFORMATION
  Report Type: 
  Country: None (occurrence: None)
  Receive Date: 20100813
  Receipt Date: 20100802
  Transmission Date: 20110219
  Serious: Yes (Hospitalization, Other)
  Sender: FDA-Public Use
  Company Number: PHHY2010BR51364

PATIENT
  Sex: Female

DRUGS (1)
  1. EXFORGE [Suspect]
     Dosage: 160/5 MG

REACTIONS (2)
  - ANEURYSM REPAIR [None]
  - DRUG DOSE OMISSION [None]
